FAERS Safety Report 24461840 (Version 1)
Quarter: 2024Q4

REPORT INFORMATION
  Report Type: Spontaneous
  Country: CN (occurrence: CN)
  Receive Date: 20241018
  Receipt Date: 20241018
  Transmission Date: 20250114
  Serious: No
  Sender: ROCHE
  Company Number: CN-ROCHE-3565763

PATIENT
  Age: 19 Year
  Sex: Female

DRUGS (5)
  1. RITUXIMAB [Suspect]
     Active Substance: RITUXIMAB
     Indication: Glomerulonephritis minimal lesion
     Route: 042
     Dates: start: 20210929
  2. PREDNISONE [Concomitant]
     Active Substance: PREDNISONE
     Dates: start: 201903
  3. PREDNISONE [Concomitant]
     Active Substance: PREDNISONE
     Dosage: 10~20MG PER DAY
     Dates: start: 201911
  4. PREDNISONE [Concomitant]
     Active Substance: PREDNISONE
     Dates: start: 202109
  5. TACROLIMUS [Concomitant]
     Active Substance: TACROLIMUS
     Dates: start: 201905

REACTIONS (2)
  - Off label use [Unknown]
  - No adverse event [Unknown]
